FAERS Safety Report 8609493-7 (Version None)
Quarter: 2012Q3

REPORT INFORMATION
  Report Type: 
  Country: None (occurrence: None)
  Receive Date: 20120423
  Receipt Date: 20090303
  Transmission Date: 20120928
  Serious: Yes (Disabling, Other)
  Sender: FDA-Public Use
  Company Number: PHEH2009US02235

PATIENT
  Age: 57 Year
  Sex: Female
  Weight: 75.3 kg

DRUGS (3)
  1. FEMARA [Suspect]
     Indication: BREAST CANCER
     Dosage: 2.5 MG, QD, ORAL
     Route: 048
     Dates: start: 20071001, end: 20081101
  2. AMLODIPINE [Concomitant]
  3. LEVOTHYROXINE SODIUM [Concomitant]

REACTIONS (8)
  - ACTIVITIES OF DAILY LIVING IMPAIRED [None]
  - WALKING AID USER [None]
  - BONE PAIN [None]
  - PAIN IN EXTREMITY [None]
  - IMPAIRED WORK ABILITY [None]
  - INSOMNIA [None]
  - PALPITATIONS [None]
  - GAIT DISTURBANCE [None]
